FAERS Safety Report 21984266 (Version 1)
Quarter: 2023Q1

REPORT INFORMATION
  Report Type: Other
  Country: US (occurrence: None)
  Receive Date: 20230213
  Receipt Date: 20230213
  Transmission Date: 20230417
  Serious: Yes (Other)
  Sender: FDA-Public Use
  Company Number: US-ROCHE-3281182

PATIENT
  Age: 60 Year
  Sex: Male

DRUGS (1)
  1. XELODA [Suspect]
     Active Substance: CAPECITABINE
     Indication: Colon cancer
     Dosage: TAKE 3 TABLET(S) BY MOUTH EVERY MORNING AND TAKE 3 TABLET(S) BY MOUTH EVERY EVENING 2 WEEK(S) ON, 1
     Route: 048

REACTIONS (1)
  - Neoplasm malignant [Unknown]
